FAERS Safety Report 4692374-1 (Version None)
Quarter: 2005Q2

REPORT INFORMATION
  Report Type: 
  Country: None (occurrence: None)
  Receive Date: 20050616
  Receipt Date: 20050601
  Transmission Date: 20051028
  Serious: Yes (Life-Threatening, Hospitalization)
  Sender: FDA-Public Use
  Company Number: JP_040102551

PATIENT
  Age: 54 Year
  Sex: Female

DRUGS (8)
  1. ZYPREXA [Suspect]
     Indication: MANIA
     Dosage: 40 MG DAY
     Dates: start: 20020801, end: 20031101
  2. HALOPERIDOL [Concomitant]
  3. LITHIUM CARBONATE [Concomitant]
  4. LEVOMEPROMAZINE [Concomitant]
  5. CLONAZEPAM [Concomitant]
  6. BIPERIDEN HYDROCHLORIDE TAB [Concomitant]
  7. PROMETHAZINE HCL [Concomitant]
  8. MAGNESIUM OXIDE [Concomitant]

REACTIONS (18)
  - BLOOD ALKALINE PHOSPHATASE INCREASED [None]
  - CHEST DISCOMFORT [None]
  - CYANOSIS [None]
  - DEEP VEIN THROMBOSIS [None]
  - DELUSION [None]
  - DISORIENTATION [None]
  - DRUG INEFFECTIVE [None]
  - DRUG INTERACTION [None]
  - GAIT DISTURBANCE [None]
  - HALLUCINATION, AUDITORY [None]
  - HYPERPROLACTINAEMIA [None]
  - HYPOTHYROIDISM [None]
  - HYPOXIA [None]
  - MANIA [None]
  - PRESCRIBED OVERDOSE [None]
  - PULMONARY EMBOLISM [None]
  - PULMONARY HYPERTENSION [None]
  - TACHYCARDIA [None]
